FAERS Safety Report 6816453-5 (Version None)
Quarter: 2010Q2

REPORT INFORMATION
  Report Type: 
  Country: None (occurrence: None)
  Receive Date: 20100630
  Receipt Date: 20100407
  Transmission Date: 20101027
  Serious: No
  Sender: FDA-Public Use
  Company Number: GandW FILE C-10-027

PATIENT
  Sex: Female

DRUGS (1)
  1. SHOPRITE (LUBRICATING JELLY) [Suspect]
     Indication: DRUG THERAPY

REACTIONS (2)
  - PRODUCT QUALITY ISSUE [None]
  - VULVOVAGINAL BURNING SENSATION [None]
